FAERS Safety Report 12186722 (Version 1)
Quarter: 2016Q1

REPORT INFORMATION
  Report Type: Spontaneous
  Country: US (occurrence: None)
  Receive Date: 20160316
  Receipt Date: 20160316
  Transmission Date: 20160526
  Serious: Yes (Death, Hospitalization)
  Sender: FDA-Public Use
  Company Number: None

PATIENT
  Age: 75 Year
  Sex: Female
  Weight: 58.3 kg

DRUGS (2)
  1. BRENTUXIMAB [Suspect]
     Active Substance: BRENTUXIMAB VEDOTIN
     Indication: DIFFUSE LARGE B-CELL LYMPHOMA
     Dosage: 1.2 MG/KG (68MG) DAY 1, 8, 15 IV
     Route: 042
     Dates: start: 20150717, end: 20150731
  2. RITUXIMAB - COMMERCIAL SUPPLY [Suspect]
     Active Substance: RITUXIMAB
     Indication: DIFFUSE LARGE B-CELL LYMPHOMA
     Dosage: 375.0 MG/M2 (588MG) DAY 1, 8, 15, + 22 IV
     Route: 042
     Dates: start: 20150717, end: 20150731

REACTIONS (6)
  - Drug-induced liver injury [None]
  - Pneumonia [None]
  - Hyperglycaemia [None]
  - Urinary tract infection [None]
  - Colitis [None]
  - Device related infection [None]

NARRATIVE: CASE EVENT DATE: 20150804
